FAERS Safety Report 7810385-1 (Version None)
Quarter: 2011Q4

REPORT INFORMATION
  Report Type: 
  Country: None (occurrence: None)
  Receive Date: 20111012
  Receipt Date: 20111003
  Transmission Date: 20120403
  Serious: Yes (Hospitalization)
  Sender: FDA-Public Use
  Company Number: US-ASTRAZENECA-2011SE59593

PATIENT
  Age: 69 Year
  Sex: Male

DRUGS (1)
  1. NEXIUM [Suspect]
     Route: 048

REACTIONS (4)
  - EXTRAOCULAR MUSCLE PARESIS [None]
  - RASH [None]
  - VISUAL IMPAIRMENT [None]
  - GLAUCOMA [None]
